FAERS Safety Report 8507422-8 (Version None)
Quarter: 2012Q3

REPORT INFORMATION
  Report Type: 
  Country: None (occurrence: None)
  Receive Date: 20120712
  Receipt Date: 20120629
  Transmission Date: 20120928
  Serious: Yes (Other)
  Sender: FDA-Public Use
  Company Number: CHPA2012US014751

PATIENT
  Sex: Male

DRUGS (1)
  1. TRANSDERM SCOP [Suspect]
     Indication: MOTION SICKNESS
     Dosage: 1 DF, UNK
     Route: 062

REACTIONS (1)
  - DELIRIUM [None]
